FAERS Safety Report 6902270-4 (Version None)
Quarter: 2010Q3

REPORT INFORMATION
  Report Type: 
  Country: None (occurrence: None)
  Receive Date: 20100803
  Receipt Date: 20080520
  Transmission Date: 20110219
  Serious: No
  Sender: FDA-Public Use
  Company Number: US-PFIZER INC-2008041161

PATIENT
  Sex: Female
  Weight: 72.727 kg

DRUGS (7)
  1. LYRICA [Suspect]
     Indication: FIBROMYALGIA
     Dates: start: 20080201
  2. ALL OTHER THERAPEUTIC PRODUCTS [Concomitant]
  3. TRAZODONE [Concomitant]
  4. PAXIL [Concomitant]
  5. MS CONTIN [Concomitant]
  6. DURAGESIC-100 [Concomitant]
  7. PREVACID [Concomitant]

REACTIONS (4)
  - DIZZINESS [None]
  - DRY MOUTH [None]
  - MYALGIA [None]
  - WEIGHT INCREASED [None]
